FAERS Safety Report 7675185-4 (Version None)
Quarter: 2011Q3

REPORT INFORMATION
  Report Type: 
  Country: None (occurrence: None)
  Receive Date: 20110810
  Receipt Date: 20110810
  Transmission Date: 20111222
  Serious: Yes (Hospitalization)
  Sender: FDA-Public Use
  Company Number: None

PATIENT
  Sex: Female
  Weight: 84.77 kg

DRUGS (18)
  1. FOLIC ACID [Concomitant]
     Route: 048
  2. PROCHLORPERAZINE [Concomitant]
     Route: 048
  3. GABAPENTIN [Concomitant]
     Route: 048
  4. PEMETREXED [Suspect]
     Indication: NON-SMALL CELL LUNG CANCER METASTATIC
     Dosage: 500 MG PER METER SQUARED
     Route: 042
     Dates: start: 20110627, end: 20110718
  5. LORAZEPAM [Concomitant]
     Route: 048
  6. DOCUSATE -COLACE [Concomitant]
     Route: 048
  7. LEVETIRACETAM [Concomitant]
     Route: 048
  8. BENADRYL [Concomitant]
     Route: 048
  9. MORPHINE SULFATE [Concomitant]
     Route: 048
  10. MORPHINE [Concomitant]
     Route: 048
  11. CLINDAMYCIN 1 % EX GEL [Concomitant]
     Route: 061
  12. DEXAMETHASONE [Concomitant]
     Route: 048
  13. NAPROXEN SODIUM (ALEVE) [Concomitant]
     Route: 048
  14. ALIMTA [Concomitant]
     Route: 042
  15. PREDNISONE [Concomitant]
     Route: 048
  16. NEUTRA-PHOS-K [Concomitant]
     Route: 048
  17. EFFEXOR XR [Concomitant]
     Route: 048
  18. LOPERAMIDE HCL -IMODIUM A-D [Concomitant]
     Route: 048

REACTIONS (1)
  - PNEUMONIA [None]
